FAERS Safety Report 15533179 (Version 3)
Quarter: 2021Q2

REPORT INFORMATION
  Report Type: Spontaneous
  Country: HR (occurrence: HR)
  Receive Date: 20181019
  Receipt Date: 20210607
  Transmission Date: 20210716
  Serious: Yes (Death, Other)
  Sender: FDA-Public Use
  Company Number: HR-AMGEN-HRVSP2018144270

PATIENT
  Age: 42 Year
  Sex: Male
  Weight: 75 kg

DRUGS (21)
  1. FOLINIC ACID [Concomitant]
     Active Substance: LEUCOVORIN
     Indication: ADENOCARCINOMA OF COLON
  2. 5?FU [Concomitant]
     Active Substance: FLUOROURACIL
     Indication: COLON CANCER METASTATIC
     Dosage: UNK, CYCLICAL
     Dates: start: 20160222, end: 20180725
  3. 5?FU [Concomitant]
     Active Substance: FLUOROURACIL
     Indication: METASTASES TO LIVER
  4. IRINOTECAN [Concomitant]
     Active Substance: IRINOTECAN
     Indication: METASTASES TO LYMPH NODES
  5. PANITUMUMAB [Suspect]
     Active Substance: PANITUMUMAB
     Indication: ADENOCARCINOMA OF COLON
     Dosage: UNK UNK, CYCLICAL (AFTER HELD FOR FIVE CYCLES)
     Route: 042
     Dates: start: 2017
  6. PANITUMUMAB [Suspect]
     Active Substance: PANITUMUMAB
     Indication: METASTASES TO LIVER
     Dosage: 450 MG, Q2WK (RESTARTED AFTER PAUSE FOR ONE CYCLE)
     Route: 042
     Dates: start: 2016, end: 201610
  7. FOLINIC ACID [Concomitant]
     Active Substance: LEUCOVORIN
     Indication: METASTASES TO LIVER
  8. FOLINIC ACID [Concomitant]
     Active Substance: LEUCOVORIN
     Indication: METASTASES TO LYMPH NODES
  9. IRINOTECAN [Concomitant]
     Active Substance: IRINOTECAN
     Indication: COLON CANCER METASTATIC
     Dosage: UNK, CYCLICAL
     Dates: start: 20160222, end: 20180725
  10. PANITUMUMAB [Suspect]
     Active Substance: PANITUMUMAB
     Indication: METASTASES TO LYMPH NODES
     Dosage: 300 MG, Q2WK (RESTARTED AFTER PAUSE FOR ONE CYCLE)
     Route: 042
     Dates: start: 2016, end: 201701
  11. PANITUMUMAB [Suspect]
     Active Substance: PANITUMUMAB
     Indication: COLON CANCER METASTATIC
     Dosage: 450 MG, Q2WK
     Route: 042
     Dates: start: 20160323, end: 201604
  12. FOLINIC ACID [Concomitant]
     Active Substance: LEUCOVORIN
     Indication: COLON CANCER METASTATIC
     Dosage: UNK UNK, CYCLICAL
     Dates: start: 20160222, end: 20180725
  13. 5?FU [Concomitant]
     Active Substance: FLUOROURACIL
     Indication: RECTOSIGMOID CANCER METASTATIC
  14. IRINOTECAN [Concomitant]
     Active Substance: IRINOTECAN
     Indication: RECTOSIGMOID CANCER METASTATIC
  15. PANITUMUMAB [Suspect]
     Active Substance: PANITUMUMAB
     Dosage: UNK UNK, CYCLICAL, THERAPY REINTRODUCED
     Route: 042
     Dates: start: 201712, end: 201808
  16. FOLINIC ACID [Concomitant]
     Active Substance: LEUCOVORIN
     Indication: RECTOSIGMOID CANCER METASTATIC
  17. 5?FU [Concomitant]
     Active Substance: FLUOROURACIL
     Indication: METASTASES TO LYMPH NODES
  18. 5?FU [Concomitant]
     Active Substance: FLUOROURACIL
     Indication: ADENOCARCINOMA OF COLON
  19. PANITUMUMAB [Suspect]
     Active Substance: PANITUMUMAB
     Indication: RECTOSIGMOID CANCER METASTATIC
     Dosage: UNK UNK, CYCLICAL, MAINTAINENCE THERAPY
     Route: 042
     Dates: start: 2017
  20. IRINOTECAN [Concomitant]
     Active Substance: IRINOTECAN
     Indication: METASTASES TO LIVER
  21. IRINOTECAN [Concomitant]
     Active Substance: IRINOTECAN
     Indication: ADENOCARCINOMA OF COLON

REACTIONS (15)
  - Platelet count increased [Unknown]
  - Nausea [Unknown]
  - Jaundice [Unknown]
  - General physical health deterioration [Unknown]
  - Haematocrit decreased [Unknown]
  - Rash erythematous [Recovered/Resolved]
  - Blood creatinine decreased [Unknown]
  - Abdominal pain upper [Unknown]
  - Haemoglobin decreased [Unknown]
  - Decreased appetite [Unknown]
  - Colorectal cancer metastatic [Fatal]
  - Rash pustular [Recovered/Resolved]
  - Red blood cell count decreased [Unknown]
  - Dermatitis acneiform [Recovered/Resolved]
  - Biliary tract disorder [Unknown]

NARRATIVE: CASE EVENT DATE: 20160404
